FAERS Safety Report 10263170 (Version 2)
Quarter: 2014Q2

REPORT INFORMATION
  Report Type: Report from Study
  Country: US (occurrence: US)
  Receive Date: 20140626
  Receipt Date: 20140626
  Transmission Date: 20141212
  Serious: Yes (Death)
  Sender: FDA-Public Use
  Company Number: US-MYLANLABS-2014S1004808

PATIENT
  Age: 79 Year
  Sex: Female

DRUGS (7)
  1. CLOZAPINE TABLETS [Suspect]
     Indication: PARKINSON^S DISEASE
     Route: 048
     Dates: end: 201312
  2. CLOZAPINE TABLETS [Suspect]
     Indication: OFF LABEL USE
     Route: 048
     Dates: end: 201312
  3. CARBIDOPA AND LEVODOPA [Concomitant]
     Dosage: USING 25MG/100MG TABLETS (1 PLUS 1/2 TABLET)
     Route: 048
  4. ARICEPT [Concomitant]
     Route: 048
  5. SEROQUEL [Concomitant]
     Dosage: USING 100MG TABLET
     Route: 048
  6. ZOLOFT [Concomitant]
     Route: 048
  7. LANOXIN [Concomitant]
     Route: 048

REACTIONS (1)
  - Parkinson^s disease [Fatal]
